FAERS Safety Report 9437766 (Version 1)
Quarter: 2013Q3

REPORT INFORMATION
  Report Type: Spontaneous
  Country: US (occurrence: US)
  Receive Date: 20130802
  Receipt Date: 20130802
  Transmission Date: 20140515
  Serious: Yes (Death, Life-Threatening, Hospitalization)
  Sender: FDA-Public Use
  Company Number: US-BRISTOL-MYERS SQUIBB COMPANY-17419482

PATIENT
  Age: 69 Year
  Sex: Male
  Weight: 112 kg

DRUGS (12)
  1. COUMADIN [Suspect]
     Indication: PULMONARY EMBOLISM
     Route: 048
     Dates: start: 20120830, end: 20120919
  2. COUMADIN [Suspect]
     Indication: DEEP VEIN THROMBOSIS
     Route: 048
     Dates: start: 20120830, end: 20120919
  3. TEMSIROLIMUS [Concomitant]
     Indication: PROSTATE CANCER
     Route: 042
     Dates: start: 20120614, end: 20120918
  4. LORATADINE [Concomitant]
  5. DIPHENHYDRAMINE [Concomitant]
  6. AMITRIPTYLINE [Concomitant]
  7. ENOXAPARIN [Concomitant]
  8. FUROSEMIDE [Concomitant]
  9. HYDROCODONE [Concomitant]
  10. CALCIUM [Concomitant]
  11. FLOMAX [Concomitant]
  12. METOPROLOL TARTRATE [Concomitant]

REACTIONS (1)
  - Haemorrhage intracranial [Fatal]
